FAERS Safety Report 7328638-2 (Version None)
Quarter: 2011Q1

REPORT INFORMATION
  Report Type: 
  Country: None (occurrence: None)
  Receive Date: 20110303
  Receipt Date: 20110228
  Transmission Date: 20110831
  Serious: Yes (Other)
  Sender: FDA-Public Use
  Company Number: US-PFIZER INC-2010141299

PATIENT
  Sex: Female

DRUGS (7)
  1. XANAX [Concomitant]
     Indication: ANXIETY
     Dosage: UNK
     Dates: start: 20070101
  2. NORCO [Concomitant]
     Indication: PAIN
     Dosage: 10/325
     Dates: start: 20070101
  3. CHANTIX [Suspect]
     Dosage: 1 MG, 2X/DAY
     Dates: start: 20100508, end: 20100511
  4. PAXIL [Concomitant]
     Dosage: 4 MG, UNK
  5. CHANTIX [Suspect]
     Dosage: 0.5 MG, 2X/DAY
     Dates: start: 20100504, end: 20100507
  6. CHANTIX [Suspect]
     Indication: SMOKING CESSATION THERAPY
     Dosage: 0.5 MG, UNK
     Dates: start: 20100501, end: 20100503
  7. SOMA [Concomitant]
     Indication: MUSCLE SPASMS
     Dosage: 350
     Dates: start: 20070101

REACTIONS (5)
  - HALLUCINATION [None]
  - NERVOUSNESS [None]
  - FEELING ABNORMAL [None]
  - CONFUSIONAL STATE [None]
  - LOSS OF CONSCIOUSNESS [None]
